FAERS Safety Report 18456638 (Version 1)
Quarter: 2020Q4

REPORT INFORMATION
  Report Type: Spontaneous
  Country: US (occurrence: US)
  Receive Date: 20201103
  Receipt Date: 20201103
  Transmission Date: 20210114
  Serious: No
  Sender: FDA-Public Use
  Company Number: US-SUNOVION-2020SUN003192

PATIENT
  Sex: Female

DRUGS (1)
  1. APTIOM [Suspect]
     Active Substance: ESLICARBAZEPINE ACETATE
     Indication: MULTIPLE SCLEROSIS
     Dosage: 800 MG, QD
     Route: 048

REACTIONS (2)
  - Feeling abnormal [Unknown]
  - Off label use [Unknown]
